FAERS Safety Report 25332689 (Version 1)
Quarter: 2025Q2

REPORT INFORMATION
  Report Type: Spontaneous
  Country: FR (occurrence: FR)
  Receive Date: 20250519
  Receipt Date: 20250519
  Transmission Date: 20250717
  Serious: Yes (Death, Congenital Anomaly)
  Sender: AMGEN
  Company Number: None

PATIENT

DRUGS (10)
  1. FILGRASTIM [Suspect]
     Active Substance: FILGRASTIM
     Indication: Exposure during pregnancy
     Route: 064
     Dates: start: 202408, end: 202410
  2. METFORMIN HYDROCHLORIDE [Suspect]
     Active Substance: METFORMIN HYDROCHLORIDE
     Indication: Exposure during pregnancy
     Dosage: 500 MILLIGRAM, QD
     Route: 064
     Dates: start: 20240825, end: 202411
  3. HYDROXYCHLOROQUINE SULFATE [Suspect]
     Active Substance: HYDROXYCHLOROQUINE SULFATE
     Indication: Exposure during pregnancy
     Dosage: 200 MILLIGRAM, QD
     Route: 064
     Dates: start: 202408, end: 20241108
  4. PREDNISONE [Suspect]
     Active Substance: PREDNISONE
     Indication: Exposure during pregnancy
     Dosage: 10 MILLIGRAM, QD
     Route: 064
     Dates: start: 202408, end: 20241108
  5. LOVENOX [Suspect]
     Active Substance: ENOXAPARIN SODIUM
     Indication: Exposure during pregnancy
     Dosage: 0.6 MILLILITER, QD
     Route: 064
     Dates: start: 202408, end: 20241108
  6. VITAMIN E [Suspect]
     Active Substance: .ALPHA.-TOCOPHEROL
     Indication: Exposure during pregnancy
     Dosage: 1 GRAM, QD
     Route: 064
     Dates: start: 202408, end: 20241108
  7. PROGESTERONE [Suspect]
     Active Substance: PROGESTERONE
     Indication: Exposure during pregnancy
     Dosage: 400 MILLIGRAM, QD
     Route: 064
     Dates: start: 2024, end: 202411
  8. ESTRADIOL [Suspect]
     Active Substance: ESTRADIOL
     Indication: Exposure during pregnancy
     Dosage: 4 MILLIGRAM, QD
     Route: 064
     Dates: start: 2024, end: 202411
  9. ASPIRIN [Suspect]
     Active Substance: ASPIRIN
     Indication: Exposure during pregnancy
     Dosage: 100 MILLIGRAM, QD
     Route: 064
     Dates: start: 2024, end: 20241108
  10. CHOLECALCIFEROL [Suspect]
     Active Substance: CHOLECALCIFEROL
     Indication: Exposure during pregnancy
     Route: 064
     Dates: start: 20240825, end: 20241108

REACTIONS (2)
  - Multiple congenital abnormalities [Fatal]
  - Foetal exposure during pregnancy [Unknown]

NARRATIVE: CASE EVENT DATE: 20241106
